FAERS Safety Report 23460342 (Version 2)
Quarter: 2024Q2

REPORT INFORMATION
  Report Type: Report from Study
  Country: IT (occurrence: IT)
  Receive Date: 20240131
  Receipt Date: 20240404
  Transmission Date: 20240715
  Serious: Yes (Other)
  Sender: FDA-Public Use
  Company Number: IT-JNJFOC-20240167801

PATIENT
  Age: 61 Year
  Sex: Male

DRUGS (2)
  1. ESKETAMINE [Suspect]
     Active Substance: ESKETAMINE
     Indication: Depression
     Dosage: 56 MG, 1 DOSE
     Dates: start: 20231017, end: 20231017
  2. ESKETAMINE [Suspect]
     Active Substance: ESKETAMINE
     Dosage: 84 MG, 9 DOSES
     Dates: start: 20231020, end: 20231121

REACTIONS (1)
  - Hypothyroidism [Not Recovered/Not Resolved]

NARRATIVE: CASE EVENT DATE: 20231123
